FAERS Safety Report 22339160 (Version 1)
Quarter: 2023Q2

REPORT INFORMATION
  Report Type: Report from Study
  Country: US (occurrence: US)
  Receive Date: 20230518
  Receipt Date: 20230518
  Transmission Date: 20230721
  Serious: Yes (Other)
  Sender: FDA-Public Use
  Company Number: US-ABBVIE-4768791

PATIENT
  Sex: Male

DRUGS (1)
  1. IMBRUVICA [Suspect]
     Active Substance: IBRUTINIB
     Indication: Graft versus host disease
     Dosage: ORAL SUSP 70MG/ML?ONSET DATE FOR EVENTS HIP BONE DENSITY READING WAS ABNORMALLY LOW, HYDROCEPHALU...
     Route: 048
     Dates: start: 20230120

REACTIONS (4)
  - Hydrocephalus [Unknown]
  - Vitamin D decreased [Unknown]
  - Osteopenia [Unknown]
  - Product temperature excursion issue [Unknown]
